FAERS Safety Report 11130317 (Version 1)
Quarter: 2015Q2

REPORT INFORMATION
  Report Type: Spontaneous
  Country: DE (occurrence: DE)
  Receive Date: 20150522
  Receipt Date: 20150522
  Transmission Date: 20150821
  Serious: Yes (Other)
  Sender: FDA-Public Use
  Company Number: ALCN2015DE003209

PATIENT
  Age: 82 Year
  Sex: Female

DRUGS (1)
  1. VITALUX PLUS [Suspect]
     Active Substance: VITAMINS
     Indication: AGE-RELATED MACULAR DEGENERATION
     Dosage: UNK

REACTIONS (2)
  - Condition aggravated [Unknown]
  - Neovascular age-related macular degeneration [Unknown]
